FAERS Safety Report 20068025 (Version 1)
Quarter: 2021Q4

REPORT INFORMATION
  Report Type: Spontaneous
  Country: US (occurrence: None)
  Receive Date: 20211112
  Receipt Date: 20211112
  Transmission Date: 20220303
  Serious: Yes (Life-Threatening, Hospitalization)
  Sender: FDA-Public Use
  Company Number: None

PATIENT
  Age: 59 Year
  Sex: Male
  Weight: 97 kg

DRUGS (1)
  1. SULFAMETHOXAZOLE\TRIMETHOPRIM [Suspect]
     Active Substance: SULFAMETHOXAZOLE\TRIMETHOPRIM
     Indication: Dermatitis allergic
     Dosage: FREQUENCY : TWICE A DAY;?
     Route: 048
     Dates: start: 20210414, end: 20210429

REACTIONS (9)
  - Ocular hyperaemia [None]
  - Eye swelling [None]
  - Lip swelling [None]
  - Pharyngeal swelling [None]
  - Angioedema [None]
  - Skin exfoliation [None]
  - Rash [None]
  - Nausea [None]
  - Vomiting [None]

NARRATIVE: CASE EVENT DATE: 20210429
